FAERS Safety Report 5991676-6 (Version None)
Quarter: 2008Q4

REPORT INFORMATION
  Report Type: 
  Country: None (occurrence: None)
  Receive Date: 20081211
  Receipt Date: 20081126
  Transmission Date: 20090506
  Serious: Yes (Death, Other)
  Sender: FDA-Public Use
  Company Number: ES-ROCHE-601700

PATIENT
  Age: 20 Year
  Sex: Male

DRUGS (7)
  1. INTERFERON ALFA [Suspect]
     Dosage: PROGRESSIVELY INCREASING DOSES OVER A SIX-MONTH PERIOD
     Route: 065
  2. ACITRETIN [Suspect]
     Route: 048
  3. CYCLOPHOSPHAMIDE [Suspect]
     Route: 065
  4. DOXORUBICIN HCL [Suspect]
     Route: 065
  5. VINCRISTINE [Suspect]
     Route: 065
  6. PREDNISONE TAB [Suspect]
     Route: 048
  7. CHEMOTHERAPY NOS [Suspect]
     Route: 065

REACTIONS (4)
  - CONDITION AGGRAVATED [None]
  - OFF LABEL USE [None]
  - SEPSIS [None]
  - T-CELL LYMPHOMA [None]
